FAERS Safety Report 25376265 (Version 1)
Quarter: 2025Q2

REPORT INFORMATION
  Report Type: Spontaneous
  Country: FR (occurrence: FR)
  Receive Date: 20250529
  Receipt Date: 20250529
  Transmission Date: 20250716
  Serious: Yes (Hospitalization)
  Sender: TEVA
  Company Number: None

PATIENT
  Age: 54 Year
  Sex: Male
  Weight: 58 kg

DRUGS (6)
  1. VALPROIC ACID [Suspect]
     Active Substance: VALPROIC ACID
     Indication: Schizophrenia
     Route: 048
     Dates: start: 20250415, end: 20250422
  2. OLANZAPINE [Concomitant]
     Active Substance: OLANZAPINE
     Indication: Psychiatric decompensation
     Route: 048
     Dates: start: 20250415
  3. FOLIC ACID [Concomitant]
     Active Substance: FOLIC ACID
     Indication: Blood folate decreased
     Route: 048
     Dates: start: 20250416
  4. VALPROATE SODIUM [Suspect]
     Active Substance: VALPROATE SODIUM
     Indication: Schizophrenia
     Route: 048
     Dates: start: 20250422, end: 20250430
  5. VALIUM [Concomitant]
     Active Substance: DIAZEPAM
     Indication: Psychiatric decompensation
     Dosage: ORAL SOLUTION IN DROPS
     Route: 048
     Dates: start: 20250414
  6. CYAMEMAZINE [Concomitant]
     Active Substance: CYAMEMAZINE
     Indication: Psychiatric decompensation
     Dosage: ORAL SOLUTION IN DROPS
     Route: 048
     Dates: start: 20250428, end: 20250430

REACTIONS (3)
  - Psychomotor skills impaired [Recovered/Resolved]
  - Disorientation [Recovered/Resolved]
  - Hyperammonaemia [Recovered/Resolved]

NARRATIVE: CASE EVENT DATE: 20250424
